FAERS Safety Report 10903673 (Version 3)
Quarter: 2015Q2

REPORT INFORMATION
  Report Type: Spontaneous
  Country: FR (occurrence: FR)
  Receive Date: 20150311
  Receipt Date: 20150415
  Transmission Date: 20150821
  Serious: Yes (Life-Threatening, Other)
  Sender: FDA-Public Use
  Company Number: PHHY2015FR021091

PATIENT
  Age: 58 Year
  Sex: Female

DRUGS (10)
  1. DIAMICRON [Suspect]
     Active Substance: GLICLAZIDE
     Dosage: 60 MG, BID
     Route: 065
     Dates: start: 20130920
  2. MINIDRIL [Concomitant]
     Active Substance: ETHINYL ESTRADIOL\LEVONORGESTREL
     Indication: CONTRACEPTION
     Route: 048
  3. LANTUS [Suspect]
     Active Substance: INSULIN GLARGINE
     Indication: TYPE 2 DIABETES MELLITUS
     Dosage: 12 IU, QD
     Route: 058
     Dates: start: 20130920
  4. DUOTRAV [Concomitant]
     Active Substance: TIMOLOL\TRAVOPROST
     Indication: OPEN ANGLE GLAUCOMA
     Dosage: 1 GTT, QD
     Route: 047
     Dates: start: 20130917
  5. EUCREAS [Suspect]
     Active Substance: METFORMIN HYDROCHLORIDE\VILDAGLIPTIN
     Indication: TYPE 2 DIABETES MELLITUS
     Dosage: 1 DF, QD (1000 MG METF AND 50 MG VILD)
     Route: 048
     Dates: start: 201212, end: 20130920
  6. METFORMIN [Suspect]
     Active Substance: METFORMIN HYDROCHLORIDE
     Indication: TYPE 2 DIABETES MELLITUS
     Dosage: 1 G, BID
     Route: 048
     Dates: start: 2012
  7. GLUCOR [Concomitant]
     Active Substance: ACARBOSE
     Indication: TYPE 2 DIABETES MELLITUS
     Dosage: 50 MG, TID
     Route: 048
     Dates: start: 201212, end: 201309
  8. COVERSYL                                /FRA/ [Suspect]
     Active Substance: PERINDOPRIL
     Indication: HYPERTENSION
     Dosage: 5 MG, QD
     Route: 048
     Dates: start: 201402
  9. HUMALOG [Suspect]
     Active Substance: INSULIN LISPRO
     Indication: TYPE 2 DIABETES MELLITUS
     Dosage: 8 IU MORNING -10 IU AFTERNOON -8IU NIGHT
     Route: 058
  10. DIAMICRON [Suspect]
     Active Substance: GLICLAZIDE
     Indication: TYPE 2 DIABETES MELLITUS
     Dosage: 30 MG, BID
     Route: 048
     Dates: start: 201212, end: 20130920

REACTIONS (3)
  - Pancreatic carcinoma [Not Recovered/Not Resolved]
  - Weight decreased [Not Recovered/Not Resolved]
  - Diabetes mellitus inadequate control [Not Recovered/Not Resolved]

NARRATIVE: CASE EVENT DATE: 201411
